FAERS Safety Report 16499522 (Version 4)
Quarter: 2020Q1

REPORT INFORMATION
  Report Type: Report from Study
  Country: AU (occurrence: AU)
  Receive Date: 20190701
  Receipt Date: 20200228
  Transmission Date: 20200409
  Serious: Yes (Hospitalization)
  Sender: FDA-Public Use
  Company Number: AU-CLOVIS ONCOLOGY-CLO-2019-001258

PATIENT

DRUGS (7)
  1. RUCAPARIB [Suspect]
     Active Substance: RUCAPARIB
     Indication: OVARIAN CANCER
     Dosage: 600 MG, BID
     Route: 048
     Dates: start: 20190416, end: 20190609
  2. CRESTOR [Concomitant]
     Active Substance: ROSUVASTATIN CALCIUM
     Indication: HYPERCHOLESTEROLAEMIA
     Dosage: UNK
     Dates: start: 2009
  3. PREGABALIN. [Concomitant]
     Active Substance: PREGABALIN
     Indication: PERIPHERAL SENSORY NEUROPATHY
     Dosage: UNK
     Dates: start: 201903
  4. NIVOLUMAB [Suspect]
     Active Substance: NIVOLUMAB
     Indication: OVARIAN CANCER
     Dosage: 480 MG, Q4W
     Route: 042
     Dates: start: 20190513
  5. PERINDOPRIL [Concomitant]
     Active Substance: PERINDOPRIL
     Indication: HYPERTENSION
     Dosage: UNK
     Dates: start: 2012
  6. PALMITOYLETHANOLAMIDE [Concomitant]
     Active Substance: PALMIDROL
     Indication: PERIPHERAL SENSORY NEUROPATHY
     Dosage: UNK
     Dates: start: 201812
  7. TRAMADOL. [Concomitant]
     Active Substance: TRAMADOL
     Indication: PERIPHERAL SENSORY NEUROPATHY
     Dosage: UNK
     Dates: start: 201903

REACTIONS (2)
  - Febrile neutropenia [Recovered/Resolved]
  - Dehydration [Recovered/Resolved]

NARRATIVE: CASE EVENT DATE: 20190622
